FAERS Safety Report 14087047 (Version 1)
Quarter: 2017Q4

REPORT INFORMATION
  Report Type: Spontaneous
  Country: US (occurrence: US)
  Receive Date: 20171013
  Receipt Date: 20171013
  Transmission Date: 20180321
  Serious: Yes (Hospitalization, Other)
  Sender: FDA-Public Use
  Company Number: US-GILEAD-2017-0292260

PATIENT
  Age: 63 Year
  Sex: Male
  Weight: 96.15 kg

DRUGS (1)
  1. HARVONI [Suspect]
     Active Substance: LEDIPASVIR\SOFOSBUVIR
     Indication: CHRONIC HEPATITIS C
     Route: 065

REACTIONS (5)
  - Treatment failure [Unknown]
  - Intentional product use issue [Unknown]
  - Drug ineffective [Unknown]
  - Pancreatitis [Unknown]
  - Hepatitis C [Unknown]
